FAERS Safety Report 8517779 (Version 5)
Quarter: 2012Q4

REPORT INFORMATION
  Report Type: 
  Country: US (occurrence: US)
  Receive Date: 20120417
  Receipt Date: 20121102
  Transmission Date: 20130627
  Serious: No
  Sender: FDA-Public Use
  Company Number: US-ASTRAZENECA-2011SE22124

PATIENT
  Age: 80 Year
  Sex: Female

DRUGS (3)
  1. NEXIUM [Suspect]
     Route: 048
  2. CRESTOR [Suspect]
     Route: 048
  3. PANTOPRAZOLE [Concomitant]

REACTIONS (15)
  - Gastrooesophageal reflux disease [Unknown]
  - Abnormal behaviour [Unknown]
  - Pain [Unknown]
  - Conversion disorder [Unknown]
  - Crying [Unknown]
  - Cough [Unknown]
  - Burning sensation [Unknown]
  - Weight decreased [Unknown]
  - Aphagia [Unknown]
  - Sleep disorder due to general medical condition, insomnia type [Unknown]
  - Blood cholesterol increased [Unknown]
  - Abdominal pain upper [Unknown]
  - Insomnia [Unknown]
  - Drug dose omission [Unknown]
  - Hiatus hernia [Unknown]
